FAERS Safety Report 12969776 (Version 2)
Quarter: 2016Q4

REPORT INFORMATION
  Report Type: Spontaneous
  Country: FR (occurrence: FR)
  Receive Date: 20161123
  Receipt Date: 20161216
  Transmission Date: 20170207
  Serious: Yes (Death, Congenital Anomaly)
  Sender: FDA-Public Use
  Company Number: FR-FERRINGPH-2016FE06105

PATIENT

DRUGS (4)
  1. DOTAREM [Suspect]
     Active Substance: GADOTERATE MEGLUMINE
     Indication: NUCLEAR MAGNETIC RESONANCE IMAGING BRAIN
     Dosage: UNK
     Route: 064
     Dates: start: 20160729, end: 20160729
  2. ISOTRETINOINE [Suspect]
     Active Substance: ISOTRETINOIN
     Indication: ACNE
     Dosage: UNK
     Route: 064
     Dates: end: 201607
  3. MINIRIN [Suspect]
     Active Substance: DESMOPRESSIN ACETATE
     Indication: DIABETES INSIPIDUS
     Dosage: 2 DF, EVERY TWO DAYS
     Route: 064
     Dates: start: 20160101, end: 201609
  4. DOSTINEX [Suspect]
     Active Substance: CABERGOLINE
     Indication: GALACTORRHOEA
     Dosage: 0.5 KIU WEEKLY
     Route: 064
     Dates: start: 201601, end: 201607

REACTIONS (3)
  - Abortion induced complete [Fatal]
  - Foetal exposure during pregnancy [Recovered/Resolved]
  - Congenital cerebellar agenesis [Fatal]

NARRATIVE: CASE EVENT DATE: 20160101
